FAERS Safety Report 24664905 (Version 14)
Quarter: 2025Q4

REPORT INFORMATION
  Report Type: Report from Study
  Country: IN (occurrence: IN)
  Receive Date: 20241126
  Receipt Date: 20251229
  Transmission Date: 20260118
  Serious: Yes (Other)
  Sender: PFIZER
  Company Number: IN-PFIZER INC-202200778747

PATIENT
  Age: 73 Year
  Sex: Female
  Weight: 55.3 kg

DRUGS (16)
  1. PALBOCICLIB [Suspect]
     Active Substance: PALBOCICLIB
     Indication: Breast cancer metastatic
     Dosage: 125 MG, 1X/DAY
     Route: 048
     Dates: start: 20220304
  2. PALBOCICLIB [Suspect]
     Active Substance: PALBOCICLIB
     Dosage: 75 MG, 1X/DAY
     Route: 048
     Dates: start: 20221202
  3. PALBOCICLIB [Suspect]
     Active Substance: PALBOCICLIB
     Dosage: ONCE A DAY FOR 21 DAYS FOLLOWED BY 7 DAYS OFF
     Route: 048
     Dates: start: 20250818
  4. FULVESTRANT [Concomitant]
     Active Substance: FULVESTRANT
     Indication: Breast cancer metastatic
     Dosage: UNK
     Dates: start: 202203
  5. FULVESTRANT [Concomitant]
     Active Substance: FULVESTRANT
     Dosage: 250 MG
     Route: 030
     Dates: start: 20221202
  6. FULVESTRANT [Concomitant]
     Active Substance: FULVESTRANT
     Dosage: 250 MG
     Route: 030
     Dates: start: 20250524
  7. FULVESTRANT [Concomitant]
     Active Substance: FULVESTRANT
     Dosage: 250 MG
     Route: 030
     Dates: start: 20250817
  8. ZOLEDRONIC ACID [Concomitant]
     Active Substance: ZOLEDRONIC ACID
     Dosage: UNK
  9. ZOLEDRONIC ACID [Concomitant]
     Active Substance: ZOLEDRONIC ACID
     Dosage: 4 MG (4 MG IN 100 ML NS OVER 30MIN)
     Dates: start: 20221202
  10. ZOLEDRONIC ACID [Concomitant]
     Active Substance: ZOLEDRONIC ACID
     Dosage: 4 MG (4 MG IN 100 ML NS OVER 30MIN)
     Dates: start: 20250524
  11. ZOLEDRONIC ACID [Concomitant]
     Active Substance: ZOLEDRONIC ACID
     Dosage: 4 MG (4 MG IN 100 ML NS OVER 30MIN)
     Dates: start: 20250817
  12. CALCIUM\CHOLECALCIFEROL [Concomitant]
     Active Substance: CALCIUM\CHOLECALCIFEROL
     Dosage: 500 MG, 1X/DAY
  13. GEMCAL [CALCITONIN, SALMON] [Concomitant]
     Dosage: 1 DF, 1X/DAY, (500) 1 TAB OD
  14. CCM [CALCIUM CITRATE MALATE;COLECALCIFEROL;FOLIC ACID] [Concomitant]
     Dosage: 1 DF, 1X/DAY
     Route: 048
  15. CCM [CALCIUM CITRATE MALATE;COLECALCIFEROL;FOLIC ACID] [Concomitant]
     Dosage: 17H OD
  16. MOXARIN [Concomitant]
     Dosage: LC 17H OD/SOS

REACTIONS (19)
  - Haemoglobin decreased [Not Recovered/Not Resolved]
  - Respiratory distress [Unknown]
  - Wound infection [Unknown]
  - Skin laceration [Unknown]
  - Heart rate increased [Unknown]
  - Weight increased [Unknown]
  - Pleural effusion [Not Recovered/Not Resolved]
  - Disease recurrence [Unknown]
  - Serum ferritin increased [Unknown]
  - Blood pressure diastolic increased [Unknown]
  - Dyspnoea exertional [Not Recovered/Not Resolved]
  - Fall [Unknown]
  - Breath sounds abnormal [Not Recovered/Not Resolved]
  - Blood pressure systolic increased [Unknown]
  - Nasopharyngitis [Unknown]
  - Platelet count decreased [Unknown]
  - White blood cell count decreased [Not Recovered/Not Resolved]
  - Neutrophil count decreased [Unknown]
  - Dry skin [Unknown]

NARRATIVE: CASE EVENT DATE: 20220525
